FAERS Safety Report 9471143 (Version 1)
Quarter: 2013Q3

REPORT INFORMATION
  Report Type: Spontaneous
  Country: US (occurrence: None)
  Receive Date: 20130816
  Receipt Date: 20130816
  Transmission Date: 20140515
  Serious: Yes (Disabling)
  Sender: FDA-Public Use
  Company Number: PR-AE13-000886

PATIENT
  Age: 30 Year
  Sex: Male

DRUGS (1)
  1. CARBAMIDE PEROXIDE [Suspect]
     Indication: CERUMEN REMOVAL
     Dosage: 5 DROP-S, QD OTIC
     Dates: start: 201306, end: 201306

REACTIONS (2)
  - Dizziness [None]
  - Dizziness postural [None]
